FAERS Safety Report 10750618 (Version 2)
Quarter: 2015Q2

REPORT INFORMATION
  Report Type: Spontaneous
  Country: US (occurrence: US)
  Receive Date: 20150130
  Receipt Date: 20150401
  Transmission Date: 20150821
  Serious: Yes (Other)
  Sender: FDA-Public Use
  Company Number: US-ASTRAZENECA-2015SE09304

PATIENT
  Age: 19890 Day
  Sex: Male

DRUGS (8)
  1. ZESTORETIC [Concomitant]
     Active Substance: HYDROCHLOROTHIAZIDE\LISINOPRIL
     Dosage: 25 MG -20 MG DAILY
  2. METFORMIN HCL [Concomitant]
     Active Substance: METFORMIN HYDROCHLORIDE
  3. SIMVASTATIN. [Concomitant]
     Active Substance: SIMVASTATIN
  4. NOVOLOG [Concomitant]
     Active Substance: INSULIN ASPART
  5. LEVEMIR [Concomitant]
     Active Substance: INSULIN DETEMIR
  6. BYETTA [Suspect]
     Active Substance: EXENATIDE
     Indication: TYPE 2 DIABETES MELLITUS
     Route: 065
     Dates: start: 20061214
  7. BYETTA [Suspect]
     Active Substance: EXENATIDE
     Indication: TYPE 2 DIABETES MELLITUS
     Route: 065
     Dates: start: 200612, end: 200901
  8. VITAMIN D [Concomitant]
     Active Substance: CHOLECALCIFEROL

REACTIONS (4)
  - Papillary thyroid cancer [Unknown]
  - Goitre [Unknown]
  - Thyroid cancer [Unknown]
  - Post procedural hypothyroidism [Unknown]

NARRATIVE: CASE EVENT DATE: 20080623
